FAERS Safety Report 9990667 (Version 1)
Quarter: 2014Q1

REPORT INFORMATION
  Report Type: Spontaneous
  Country: US (occurrence: None)
  Receive Date: 20140307
  Receipt Date: 20140307
  Transmission Date: 20141002
  Serious: Yes (Other)
  Sender: FDA-Public Use
  Company Number: None

PATIENT
  Age: 73 Year
  Sex: Female

DRUGS (6)
  1. PROLIA 60MG.ML AMIGEN [Suspect]
     Indication: OSTEOPOROSIS
     Dosage: 60MG, Q6MOS, SUBERT
     Route: 058
     Dates: start: 20130925
  2. CLARITIN [Concomitant]
  3. METOPROLOL [Concomitant]
  4. COLESTIPOL [Concomitant]
  5. AMLODIPINE [Concomitant]
  6. NAPOXEN [Concomitant]

REACTIONS (2)
  - Blood blister [None]
  - Pruritus [None]
